FAERS Safety Report 9849187 (Version 1)
Quarter: 2014Q1

REPORT INFORMATION
  Report Type: Spontaneous
  Country: US (occurrence: US)
  Receive Date: 20140128
  Receipt Date: 20140128
  Transmission Date: 20141002
  Serious: No
  Sender: FDA-Public Use
  Company Number: US-ABBVIE-13P-163-1067023-00

PATIENT
  Age: 72 Year
  Sex: Male

DRUGS (1)
  1. LEUPROLIDE ACETATE DEPOT [Suspect]
     Indication: PROSTATE CANCER
     Dates: start: 201109, end: 20130321

REACTIONS (2)
  - Breast tenderness [Unknown]
  - Hot flush [Unknown]
